FAERS Safety Report 13160559 (Version 1)
Quarter: 2017Q1

REPORT INFORMATION
  Report Type: Report from Study
  Country: US (occurrence: US)
  Receive Date: 20170129
  Receipt Date: 20170129
  Transmission Date: 20170428
  Serious: Yes (Hospitalization)
  Sender: FDA-Public Use
  Company Number: US-AMGEN-USASL2017011275

PATIENT
  Sex: Female

DRUGS (1)
  1. REPATHA [Suspect]
     Active Substance: EVOLOCUMAB
     Indication: BONE DISORDER
     Dosage: UNK
     Route: 065

REACTIONS (2)
  - Adverse reaction [Unknown]
  - Off label use [Unknown]

NARRATIVE: CASE EVENT DATE: 2016
